FAERS Safety Report 5902521-9 (Version None)
Quarter: 2008Q3

REPORT INFORMATION
  Report Type: 
  Country: None (occurrence: None)
  Receive Date: 20080925
  Receipt Date: 20080912
  Transmission Date: 20090109
  Serious: Yes (Hospitalization)
  Sender: FDA-Public Use
  Company Number: 238721J08USA

PATIENT
  Age: 63 Year
  Sex: Female
  Weight: 73.93 kg

DRUGS (4)
  1. REBIF [Suspect]
     Indication: MULTIPLE SCLEROSIS
     Dosage: 44 MCG, 3 IN 1 WEEKS, SUBCUTANEOUS
     Route: 058
     Dates: start: 20030401, end: 20080401
  2. SOLU-MEDROL [Suspect]
     Indication: MULTIPLE SCLEROSIS
     Dosage: 1000 MG, INTRAVENOUS, (NOT OTHERWISE SPECIFIED)
     Route: 042
     Dates: start: 20030401, end: 20080401
  3. TYLENOL (COTYLENOL) [Concomitant]
  4. BACLOFEN [Concomitant]

REACTIONS (7)
  - CONDITION AGGRAVATED [None]
  - HEADACHE [None]
  - INJECTION SITE ERYTHEMA [None]
  - INJECTION SITE PAIN [None]
  - MULTIPLE SCLEROSIS [None]
  - MYELITIS TRANSVERSE [None]
  - NAUSEA [None]
